FAERS Safety Report 9859615 (Version 3)
Quarter: 2014Q1

REPORT INFORMATION
  Report Type: Spontaneous
  Country: JP (occurrence: JP)
  Receive Date: 20140131
  Receipt Date: 20140310
  Transmission Date: 20141002
  Serious: Yes (Death, Other)
  Sender: FDA-Public Use
  Company Number: PHJP2014JP000502

PATIENT
  Age: 55 Year
  Sex: Male

DRUGS (3)
  1. TEGRETOL TAB 200MG [Suspect]
     Indication: CONVULSION
     Dosage: UNK
     Route: 048
  2. DIPRIVAN [Concomitant]
     Dosage: UNK UKN, UNK
     Route: 065
     Dates: start: 20140121, end: 20140124
  3. PRECEDEX [Concomitant]
     Dosage: 0.05 ML/MIN, UNK
     Route: 065
     Dates: start: 20140121, end: 20140121

REACTIONS (3)
  - Cardiac failure acute [Fatal]
  - Pyrexia [Unknown]
  - Platelet count decreased [Unknown]
